FAERS Safety Report 23226936 (Version 2)
Quarter: 2023Q4

REPORT INFORMATION
  Report Type: Spontaneous
  Country: US (occurrence: US)
  Receive Date: 20231124
  Receipt Date: 20231208
  Transmission Date: 20240110
  Serious: Yes (Other)
  Sender: FDA-Public Use
  Company Number: US-BRISTOL-MYERS SQUIBB COMPANY-2023-166073

PATIENT
  Age: 53 Year
  Sex: Male

DRUGS (1)
  1. LENALIDOMIDE [Suspect]
     Active Substance: LENALIDOMIDE
     Indication: Plasma cell myeloma
     Route: 048

REACTIONS (13)
  - Rash [Recovered/Resolved]
  - Metastases to bone [Unknown]
  - Hypersomnia [Unknown]
  - Abdominal distension [Unknown]
  - Peripheral swelling [Unknown]
  - Disturbance in attention [Unknown]
  - Bipolar disorder [Unknown]
  - Depression [Unknown]
  - Tooth loss [Unknown]
  - Diabetes mellitus [Unknown]
  - Diarrhoea [Unknown]
  - Constipation [Unknown]
  - Suicidal ideation [Unknown]
